FAERS Safety Report 8852141 (Version 2)
Quarter: 2012Q4

REPORT INFORMATION
  Report Type: 
  Country: US (occurrence: US)
  Receive Date: 20121022
  Receipt Date: 20121212
  Transmission Date: 20130627
  Serious: Yes (Death, Other)
  Sender: FDA-Public Use
  Company Number: US-PFIZER INC-2012259146

PATIENT
  Age: 29 Year
  Sex: Male

DRUGS (1)
  1. CHANTIX [Suspect]
     Indication: SMOKING CESSATION THERAPY
     Dosage: 0.5mg/1mg
     Dates: start: 201009, end: 201010

REACTIONS (5)
  - Completed suicide [Fatal]
  - Depression [Unknown]
  - Abnormal behaviour [Unknown]
  - Anxiety [Unknown]
  - Abnormal dreams [Unknown]
